FAERS Safety Report 6221915-8 (Version None)
Quarter: 2009Q2

REPORT INFORMATION
  Report Type: 
  Country: None (occurrence: None)
  Receive Date: 20090611
  Receipt Date: 20070921
  Transmission Date: 20091009
  Serious: Yes (Hospitalization, Other)
  Sender: FDA-Public Use
  Company Number: US-ASTRAZENECA-2007UW07739

PATIENT
  Age: 13227 Day
  Sex: Male
  Weight: 53.6 kg

DRUGS (14)
  1. SEROQUEL [Suspect]
     Indication: ANXIETY
     Route: 048
     Dates: start: 20020906, end: 20030804
  2. SEROQUEL [Suspect]
     Indication: BIPOLAR DISORDER
     Route: 048
     Dates: start: 20020906, end: 20030804
  3. SEROQUEL [Suspect]
     Dosage: 20-300MG
     Route: 048
     Dates: start: 20021107
  4. SEROQUEL [Suspect]
     Dosage: 20-300MG
     Route: 048
     Dates: start: 20021107
  5. ZYPREXA [Suspect]
     Indication: ANXIETY
     Route: 048
     Dates: start: 20031005, end: 20040213
  6. ABILIFY [Concomitant]
  7. HALDOL [Concomitant]
  8. EFFEXOR [Concomitant]
     Route: 048
  9. DEPAKOTE [Concomitant]
     Indication: MOOD SWINGS
     Route: 048
  10. DEPAKOTE [Concomitant]
     Indication: CONVULSION
     Route: 048
  11. GENERLAC [Concomitant]
     Dosage: 10GM/15ML, TWO TIMES A DAY
     Route: 048
  12. MILKTHISTLE [Concomitant]
     Route: 048
  13. LABETALOL HCL [Concomitant]
     Route: 048
  14. PHENYTOIN [Concomitant]
     Route: 048

REACTIONS (20)
  - ACCIDENT [None]
  - CHROMATURIA [None]
  - CONVULSION [None]
  - DELIRIUM TREMENS [None]
  - DIABETES MELLITUS [None]
  - DIABETIC COMA [None]
  - DIABETIC KETOACIDOSIS [None]
  - ELECTROCARDIOGRAM QRS COMPLEX PROLONGED [None]
  - HAEMATOCHEZIA [None]
  - HAEMORRHAGE INTRACRANIAL [None]
  - HEPATIC ENCEPHALOPATHY [None]
  - HEPATIC FAILURE [None]
  - HEPATITIS C [None]
  - INTERNATIONAL NORMALISED RATIO INCREASED [None]
  - JAUNDICE [None]
  - LEFT VENTRICULAR HYPERTROPHY [None]
  - LIVER DISORDER [None]
  - THROMBOCYTOPENIA [None]
  - TRAUMATIC INTRACRANIAL HAEMORRHAGE [None]
  - WEIGHT INCREASED [None]
